FAERS Safety Report 22356657 (Version 1)
Quarter: 2023Q2

REPORT INFORMATION
  Report Type: Report from Study
  Country: ES (occurrence: ES)
  Receive Date: 20230523
  Receipt Date: 20230523
  Transmission Date: 20230721
  Serious: Yes (Death, Other)
  Sender: FDA-Public Use
  Company Number: ES-ROCHE-3128691

PATIENT
  Age: 60 Year
  Sex: Female
  Weight: 50 kg

DRUGS (13)
  1. CARBOPLATIN [Suspect]
     Active Substance: CARBOPLATIN
     Indication: Lung neoplasm malignant
     Dosage: 510 MG
     Route: 065
     Dates: start: 20220118
  2. ETOPOSIDE [Suspect]
     Active Substance: ETOPOSIDE
     Indication: Lung neoplasm malignant
     Dosage: 140 MG
     Route: 042
     Dates: start: 20220118
  3. ATEZOLIZUMAB [Suspect]
     Active Substance: ATEZOLIZUMAB
     Indication: Lung neoplasm malignant
     Dosage: 1200 MG
     Route: 042
     Dates: start: 20220118
  4. NAPROXEN [Concomitant]
     Active Substance: NAPROXEN
     Dosage: 1 D (DAY)
     Dates: start: 20220531, end: 20220621
  5. RABEPRAZOLE SODIUM [Concomitant]
     Active Substance: RABEPRAZOLE SODIUM
     Dosage: 0.5 D (DAY
     Dates: start: 20190711
  6. ATROVENT [Concomitant]
     Active Substance: IPRATROPIUM BROMIDE
     Dosage: 0.33 D (DAY)
     Dates: start: 20211228
  7. PAZITAL [Concomitant]
     Active Substance: ACETAMINOPHEN\TRAMADOL HYDROCHLORIDE
     Dosage: 0.5 D (DAY)
     Dates: start: 20220222
  8. CALCIUM [Concomitant]
     Active Substance: CALCIUM
     Dosage: 1 D (DAY)
     Dates: start: 20220116
  9. LETROZOLE [Concomitant]
     Active Substance: LETROZOLE
     Dosage: 1 D(DAY)
     Dates: start: 20190904
  10. CODEINE PHOSPHATE [Concomitant]
     Active Substance: CODEINE PHOSPHATE
     Dosage: 1 D (DAY)
     Dates: start: 20220621
  11. CODEINE PHOSPHATE [Concomitant]
     Active Substance: CODEINE PHOSPHATE
     Dosage: UNK, 4X/DAY
     Dates: start: 20220628
  12. LEVOFLOXACIN [Concomitant]
     Active Substance: LEVOFLOXACIN
     Dosage: UNK, 4X/DAY
     Dates: start: 20220612
  13. ACETYLCYSTEINE [Concomitant]
     Active Substance: ACETYLCYSTEINE
     Dosage: UNK, 4X/DAY
     Dates: start: 20220712

REACTIONS (2)
  - Death [Fatal]
  - Headache [Not Recovered/Not Resolved]

NARRATIVE: CASE EVENT DATE: 20220621
